FAERS Safety Report 8395403-7 (Version None)
Quarter: 2012Q2

REPORT INFORMATION
  Report Type: 
  Country: None (occurrence: None)
  Receive Date: 20120530
  Receipt Date: 20120526
  Transmission Date: 20120825
  Serious: No
  Sender: FDA-Public Use
  Company Number: US-PFIZER INC-2012127342

PATIENT
  Sex: Female

DRUGS (3)
  1. IBUPROFEN (ADVIL) [Suspect]
     Dosage: 200 MG, UNK
  2. SEROQUEL [Concomitant]
     Dosage: 100 MG, UNK
  3. DIAZEPAM [Concomitant]
     Indication: SLEEP DISORDER
     Dosage: 25 MG, UNK

REACTIONS (2)
  - RASH [None]
  - PRURITUS [None]
